FAERS Safety Report 10398861 (Version 1)
Quarter: 2014Q3

REPORT INFORMATION
  Report Type: Spontaneous
  Country: US (occurrence: None)
  Receive Date: 20140818
  Receipt Date: 20140818
  Transmission Date: 20150326
  Serious: Yes (Other)
  Sender: FDA-Public Use
  Company Number: None

PATIENT
  Age: 14 Year
  Sex: Female
  Weight: 44.45 kg

DRUGS (1)
  1. SINGULAIR CHEW TAB 5MG GENERIC SUBSTITUTE-AUROBINDO [Suspect]
     Active Substance: MONTELUKAST SODIUM
     Indication: ASTHMA
     Route: 048
     Dates: start: 20140701, end: 20140813

REACTIONS (11)
  - Cognitive disorder [None]
  - Mood altered [None]
  - Fear [None]
  - Anger [None]
  - Hypoaesthesia [None]
  - Abnormal dreams [None]
  - Panic attack [None]
  - Aggression [None]
  - Pain in extremity [None]
  - Paranoia [None]
  - Insomnia [None]

NARRATIVE: CASE EVENT DATE: 20140813
